FAERS Safety Report 6385858-1 (Version None)
Quarter: 2009Q4

REPORT INFORMATION
  Report Type: 
  Country: None (occurrence: None)
  Receive Date: 20091002
  Receipt Date: 20090616
  Transmission Date: 20100525
  Serious: Yes (Hospitalization)
  Sender: FDA-Public Use
  Company Number: CA-PFIZER INC-2009215098

PATIENT
  Age: 59 Year
  Sex: Male
  Weight: 76 kg

DRUGS (8)
  1. BLINDED *NO SUBJECT DRUG [Suspect]
     Indication: RENAL CELL CARCINOMA
     Dosage: 50 MG, 1X/DAY
     Route: 048
     Dates: start: 20090121
  2. BLINDED *PLACEBO [Suspect]
     Indication: RENAL CELL CARCINOMA
     Dosage: 50 MG, 1X/DAY
     Route: 048
     Dates: start: 20090121
  3. BLINDED *SORAFENIB [Suspect]
     Indication: RENAL CELL CARCINOMA
     Dosage: 50 MG, 1X/DAY
     Route: 048
     Dates: start: 20090121
  4. BLINDED SUNITINIB MALATE [Suspect]
     Indication: RENAL CELL CARCINOMA
     Dosage: 50 MG, 1X/DAY
     Route: 048
     Dates: start: 20090121
  5. BLINDED *NO SUBJECT DRUG [Suspect]
     Dosage: 400 MG, 2X/DAY
     Route: 048
     Dates: start: 20090121
  6. BLINDED *PLACEBO [Suspect]
     Dosage: 400 MG, 2X/DAY
     Route: 048
     Dates: start: 20090121
  7. BLINDED *SORAFENIB [Suspect]
     Dosage: 400 MG, 2X/DAY
     Route: 048
     Dates: start: 20090121
  8. BLINDED SUNITINIB MALATE [Suspect]
     Dosage: 400 MG, 2X/DAY
     Route: 048
     Dates: start: 20090121

REACTIONS (1)
  - CHEST PAIN [None]
